FAERS Safety Report 7209432-X (Version None)
Quarter: 2011Q1

REPORT INFORMATION
  Report Type: 
  Country: None (occurrence: None)
  Receive Date: 20110104
  Receipt Date: 20101122
  Transmission Date: 20110831
  Serious: Yes (Disabling)
  Sender: FDA-Public Use
  Company Number: US-BAYER-200928637NA

PATIENT
  Sex: Female
  Weight: 91 kg

DRUGS (3)
  1. CLIMARA PRO [Suspect]
     Indication: HORMONE REPLACEMENT THERAPY
     Dosage: 0.045 MG/DAY ESTRADIOL AND 0.015 MG/DAY LEVONORGESTREL
     Route: 062
     Dates: start: 20090501, end: 20090815
  2. CLIMARA PRO [Suspect]
     Indication: DYSMENORRHOEA
     Dosage: 0.045 MG/DAY ESTRADIOL AND 0.015 MG/DAY LEVONORGESTREL
     Route: 062
     Dates: start: 20090907
  3. CLIMARA PRO [Suspect]
     Indication: DEPRESSION

REACTIONS (3)
  - DEPRESSION [None]
  - BREAST TENDERNESS [None]
  - HOT FLUSH [None]
